FAERS Safety Report 19750187 (Version 1)
Quarter: 2021Q3

REPORT INFORMATION
  Report Type: Spontaneous
  Country: US (occurrence: US)
  Receive Date: 20210826
  Receipt Date: 20210826
  Transmission Date: 20211014
  Serious: No
  Sender: FDA-Public Use
  Company Number: US-PFIZER INC-2021120720

PATIENT
  Age: 58 Year
  Sex: Female

DRUGS (2)
  1. EUCRISA [Suspect]
     Active Substance: CRISABOROLE
     Indication: DYSHIDROTIC ECZEMA
     Dosage: UNK, 2X/DAY (APPLY TO RASH BID TO HANDS)
  2. EUCRISA [Suspect]
     Active Substance: CRISABOROLE
     Dosage: UNK, EVERY 3 MONTHS (TAKES SHOTS EVERY 3 MONTHS)

REACTIONS (8)
  - Skin fissures [Unknown]
  - Off label use [Unknown]
  - Rash [Unknown]
  - Pain [Unknown]
  - Exposure to fungus [Unknown]
  - Skin haemorrhage [Unknown]
  - Pruritus [Unknown]
  - Dermatitis atopic [Unknown]
